FAERS Safety Report 8928375 (Version 1)
Quarter: 2012Q4

REPORT INFORMATION
  Report Type: 
  Country: ES (occurrence: ES)
  Receive Date: 20121128
  Receipt Date: 20121128
  Transmission Date: 20130627
  Serious: Yes (Hospitalization)
  Sender: FDA-Public Use
  Company Number: ES-SANOFI-AVENTIS-2012SA085235

PATIENT
  Age: 51 Year
  Sex: Female

DRUGS (4)
  1. SEGURIL [Suspect]
     Indication: ASCITES
     Route: 048
     Dates: start: 20120314, end: 20120422
  2. ALDACTONE [Suspect]
     Indication: HEPATIC CIRRHOSIS
     Dosage: tablets and film coated tablets
     Route: 048
     Dates: start: 20120314, end: 20120422
  3. OMEPRAZOLE [Concomitant]
     Indication: PROPHYLAXIS
     Route: 048
     Dates: start: 2008
  4. COLECALCIFEROL [Concomitant]
     Indication: OSTEOPOROSIS
     Route: 048
     Dates: start: 2008

REACTIONS (1)
  - Renal failure acute [Recovered/Resolved]
